FAERS Safety Report 6891646-X (Version None)
Quarter: 2010Q3

REPORT INFORMATION
  Report Type: 
  Country: None (occurrence: None)
  Receive Date: 20100731
  Receipt Date: 20071201
  Transmission Date: 20110219
  Serious: No
  Sender: FDA-Public Use
  Company Number: US-PFIZER INC-2007076963

PATIENT
  Sex: Male
  Weight: 77.11 kg

DRUGS (10)
  1. CAVERJECT [Suspect]
     Indication: ERECTILE DYSFUNCTION
     Route: 051
     Dates: start: 20070901
  2. INSULIN [Concomitant]
     Indication: DIABETES MELLITUS
  3. METFORMIN HCL [Concomitant]
     Indication: DIABETES MELLITUS
  4. GLIPIZIDE [Concomitant]
     Indication: DIABETES MELLITUS
  5. LISINOPRIL [Concomitant]
     Indication: HYPERTENSION
  6. SIMVASTATIN [Concomitant]
     Indication: BLOOD CHOLESTEROL INCREASED
  7. ACETYLSALICYLIC ACID SRT [Concomitant]
  8. ALL OTHER THERAPEUTIC PRODUCTS [Concomitant]
     Indication: POST-TRAUMATIC STRESS DISORDER
  9. ANALGESICS [Concomitant]
     Indication: MUSCULOSKELETAL PAIN
  10. ALL OTHER THERAPEUTIC PRODUCTS [Concomitant]
     Indication: BENIGN PROSTATIC HYPERPLASIA

REACTIONS (1)
  - DEVICE MALFUNCTION [None]
